FAERS Safety Report 10788191 (Version 1)
Quarter: 2015Q1

REPORT INFORMATION
  Report Type: Report from Study
  Country: CA (occurrence: CA)
  Receive Date: 20150212
  Receipt Date: 20150212
  Transmission Date: 20150721
  Serious: Yes (Other)
  Sender: FDA-Public Use
  Company Number: CA-BAYER-2015-016893

PATIENT
  Age: 44 Year
  Sex: Female

DRUGS (14)
  1. ELAVIL [Concomitant]
     Active Substance: AMITRIPTYLINE HYDROCHLORIDE
  2. MIGRANAL [Concomitant]
     Active Substance: DIHYDROERGOTAMINE MESYLATE
  3. DOMPERIDON [Concomitant]
     Active Substance: DOMPERIDONE
  4. LYRICA [Concomitant]
     Active Substance: PREGABALIN
  5. SATIVEX [Concomitant]
     Active Substance: NABIXIMOLS
  6. BETASERON [Suspect]
     Active Substance: INTERFERON BETA-1B
     Indication: MULTIPLE SCLEROSIS
     Dosage: 0.25 MG, QOD
     Route: 058
     Dates: start: 201412
  7. CALCITE [Concomitant]
     Active Substance: CALCIUM CARBONATE
  8. NOVOGESIC [Concomitant]
  9. ATENOLOL. [Concomitant]
     Active Substance: ATENOLOL
     Dosage: UNK
  10. TRIAZIDE [Concomitant]
     Dosage: UNK
  11. MELOXICAM. [Concomitant]
     Active Substance: MELOXICAM
  12. PULMICORT TURBUHALER [Concomitant]
     Active Substance: BUDESONIDE
  13. SPIRIVA [Concomitant]
     Active Substance: TIOTROPIUM BROMIDE MONOHYDRATE
  14. BETASERON [Suspect]
     Active Substance: INTERFERON BETA-1B
     Indication: MULTIPLE SCLEROSIS
     Dosage: UNK UNK, QOD
     Dates: start: 20140330, end: 201410

REACTIONS (3)
  - Vaginal haemorrhage [Recovered/Resolved]
  - Balance disorder [Recovered/Resolved]
  - Nausea [Recovered/Resolved]

NARRATIVE: CASE EVENT DATE: 201412
